FAERS Safety Report 9254553 (Version 2)
Quarter: 2013Q2

REPORT INFORMATION
  Report Type: Spontaneous
  Country: GB (occurrence: None)
  Receive Date: 20130422
  Receipt Date: 20130429
  Transmission Date: 20140414
  Serious: Yes (Other)
  Sender: FDA-Public Use
  Company Number: AUR-APL-2013-03145

PATIENT
  Age: 63 Year
  Sex: Female
  Weight: 69.85 kg

DRUGS (2)
  1. RAMIPRIL [Suspect]
     Indication: HYPERTENSION
     Route: 048
     Dates: start: 20130116, end: 20130328
  2. AMITRIPTYLINE (AMITRIPTYLINE) [Concomitant]

REACTIONS (6)
  - Pain [None]
  - Mobility decreased [None]
  - Pain in extremity [None]
  - Myalgia [None]
  - Pain [None]
  - Immobile [None]
